FAERS Safety Report 25489017 (Version 1)
Quarter: 2025Q2

REPORT INFORMATION
  Report Type: Spontaneous
  Country: US (occurrence: US)
  Receive Date: 20250627
  Receipt Date: 20250627
  Transmission Date: 20250717
  Serious: No
  Sender: ROCHE
  Company Number: US-ROCHE-10000315373

PATIENT
  Age: 53 Year
  Sex: Female
  Weight: 84.37 kg

DRUGS (9)
  1. XOLAIR [Suspect]
     Active Substance: OMALIZUMAB
     Indication: Urticaria
     Dosage: STRENGTH: 300 MG/2ML
     Route: 058
     Dates: start: 20250204
  2. ENBREL [Concomitant]
     Active Substance: ETANERCEPT
     Indication: Rheumatoid arthritis
     Route: 058
     Dates: start: 202206
  3. ENBREL [Concomitant]
     Active Substance: ETANERCEPT
     Indication: Arthritis reactive
  4. METHOTREXATE [Concomitant]
     Active Substance: METHOTREXATE
     Indication: Rheumatoid arthritis
     Dosage: 4 TABLETS (10 MG)
     Route: 048
     Dates: start: 202502
  5. METHOTREXATE [Concomitant]
     Active Substance: METHOTREXATE
     Indication: Arthritis reactive
  6. MOUNJARO [Concomitant]
     Active Substance: TIRZEPATIDE
     Indication: Insulin resistance
     Route: 058
     Dates: start: 202502
  7. ESCITALOPRAM [Concomitant]
     Active Substance: ESCITALOPRAM OXALATE
     Indication: Depression
     Route: 048
     Dates: start: 2007
  8. Xiidra DRO [Concomitant]
     Indication: Dry eye
     Dosage: 1 DROP BOTH EYES MORNING AND NIGHT
     Route: 047
     Dates: start: 202411
  9. HYDROXYZINE [Concomitant]
     Active Substance: HYDROXYZINE HYDROCHLORIDE
     Route: 048
     Dates: start: 2024

REACTIONS (8)
  - Eye irritation [Recovering/Resolving]
  - Bacterial rhinitis [Not Recovered/Not Resolved]
  - Eye discharge [Recovering/Resolving]
  - Ocular discomfort [Recovered/Resolved]
  - Product dose omission issue [Unknown]
  - Accidental exposure to product [Unknown]
  - Device defective [Unknown]
  - Device issue [Unknown]

NARRATIVE: CASE EVENT DATE: 20250422
